FAERS Safety Report 10874781 (Version 2)
Quarter: 2015Q1

REPORT INFORMATION
  Report Type: Spontaneous
  Country: SI (occurrence: SI)
  Receive Date: 20150227
  Receipt Date: 20150309
  Transmission Date: 20150721
  Serious: Yes (Hospitalization, Other)
  Sender: FDA-Public Use
  Company Number: PHHY2015SI020510

PATIENT
  Age: 29 Year
  Sex: Male

DRUGS (7)
  1. CCNU [Suspect]
     Active Substance: LOMUSTINE
     Indication: BURKITT^S LYMPHOMA STAGE II
     Route: 065
     Dates: start: 198502, end: 198611
  2. 5-HYDROXYUREA [Concomitant]
     Indication: BURKITT^S LYMPHOMA STAGE II
     Route: 065
     Dates: start: 198502, end: 198611
  3. CYTOSINE ARABINOSIDE [Concomitant]
     Active Substance: CYTARABINE
     Indication: BURKITT^S LYMPHOMA STAGE II
     Route: 065
     Dates: start: 198502, end: 198611
  4. CYCLOPHOSPHAMIDE. [Suspect]
     Active Substance: CYCLOPHOSPHAMIDE
     Indication: BURKITT^S LYMPHOMA STAGE II
     Route: 065
     Dates: start: 198502, end: 198611
  5. ADRIBLASTIN [Suspect]
     Active Substance: DOXORUBICIN HYDROCHLORIDE
     Indication: BURKITT^S LYMPHOMA STAGE II
     Dosage: 400 MG/M2, UNK
     Route: 065
     Dates: start: 198502, end: 198611
  6. METHOTREXATE [Concomitant]
     Active Substance: METHOTREXATE
     Indication: BURKITT^S LYMPHOMA STAGE II
     Route: 037
     Dates: start: 198502, end: 198611
  7. VINCRISTINE [Concomitant]
     Active Substance: VINCRISTINE
     Indication: BURKITT^S LYMPHOMA STAGE II
     Route: 065
     Dates: start: 198502, end: 198611

REACTIONS (13)
  - Ventricular hypokinesia [Recovering/Resolving]
  - Atrioventricular block first degree [Recovering/Resolving]
  - Ventricular tachycardia [Recovering/Resolving]
  - Left ventricular dysfunction [Recovering/Resolving]
  - Tricuspid valve incompetence [Recovering/Resolving]
  - Dyspnoea [Recovering/Resolving]
  - Mitral valve incompetence [Recovering/Resolving]
  - Congestive cardiomyopathy [Recovering/Resolving]
  - Cardiac failure [Recovering/Resolving]
  - Cardiomegaly [Recovering/Resolving]
  - Ventricular hypertrophy [Recovering/Resolving]
  - Ventricular extrasystoles [Recovering/Resolving]
  - Arrhythmia [Recovering/Resolving]

NARRATIVE: CASE EVENT DATE: 200405
